FAERS Safety Report 6033417-2 (Version None)
Quarter: 2009Q1

REPORT INFORMATION
  Report Type: 
  Country: None (occurrence: None)
  Receive Date: 20090109
  Receipt Date: 20081128
  Transmission Date: 20090719
  Serious: Yes (Disabling)
  Sender: FDA-Public Use
  Company Number: CA-PFIZER INC-2008084715

PATIENT

DRUGS (8)
  1. CHAMPIX [Suspect]
     Dosage: 1 MG, 1X/DAY
     Dates: start: 20080902, end: 20081002
  2. AVANDIA [Concomitant]
     Dosage: UNK
     Route: 048
  3. GLYBURIDE [Concomitant]
     Dosage: UNK
     Route: 048
  4. LIPITOR [Concomitant]
     Dosage: UNK
     Route: 048
  5. ASAPHEN [Concomitant]
     Dosage: UNK
     Route: 048
  6. EFFEXOR [Concomitant]
     Dosage: UNK
     Route: 048
  7. ADALAT CC [Concomitant]
     Dosage: UNK
     Route: 048
  8. ZESTRIL [Concomitant]
     Dosage: UNK

REACTIONS (3)
  - DIZZINESS [None]
  - FALL [None]
  - TREMOR [None]
